FAERS Safety Report 8864487 (Version 1)
Quarter: 2012Q4

REPORT INFORMATION
  Report Type: 
  Country: US (occurrence: US)
  Receive Date: 20121024
  Receipt Date: 20121024
  Transmission Date: 20130627
  Serious: No
  Sender: FDA-Public Use
  Company Number: US-AMGEN-USASP2011067490

PATIENT
  Age: 57 Year
  Sex: Female
  Weight: 79.37 kg

DRUGS (5)
  1. ENBREL [Suspect]
     Indication: PRODUCT USED FOR UNKNOWN INDICATION
     Dosage: 50 mg, qwk
     Route: 058
  2. FOSAMAX [Concomitant]
     Dosage: 5 mg, UNK
     Route: 048
  3. MOTRIN [Concomitant]
     Dosage: 400 mg, UNK
     Route: 048
  4. LISINOPRIL [Concomitant]
     Dosage: 2.5 mg, UNK
     Route: 048
  5. HUMIRA [Concomitant]
     Dosage: 40 mg, UNK
     Route: 058

REACTIONS (1)
  - Drug ineffective [Unknown]
